FAERS Safety Report 5537921-2 (Version None)
Quarter: 2007Q4

REPORT INFORMATION
  Report Type: 
  Country: None (occurrence: None)
  Receive Date: 20071207
  Receipt Date: 20071205
  Transmission Date: 20080405
  Serious: Yes (Death, Hospitalization)
  Sender: FDA-Public Use
  Company Number: US-ROXANE LABORATORIES, INC-2007-BP-25565RO

PATIENT
  Age: 15 Year
  Sex: Female

DRUGS (13)
  1. CYCLOPHOSPHAMIDE [Suspect]
     Indication: BONE MARROW CONDITIONING REGIMEN
  2. THIOTEPA [Suspect]
     Indication: BONE MARROW CONDITIONING REGIMEN
  3. RABBIT ANTITHYMOCYTE GLOBULIN [Suspect]
     Indication: BONE MARROW CONDITIONING REGIMEN
  4. ORTHOCLONE OKT3 [Suspect]
     Indication: BONE MARROW CONDITIONING REGIMEN
  5. HEPARIN [Concomitant]
     Indication: PROPHYLAXIS
  6. IMMUNE GLOBULIN (HUMAN) [Concomitant]
     Indication: PROPHYLAXIS
     Route: 042
  7. METRONIDAZOLE [Concomitant]
     Indication: PROPHYLAXIS
  8. AMPHOTERICIN B [Concomitant]
     Indication: PROPHYLAXIS
  9. AMPHOTERICIN B [Concomitant]
     Indication: ASPERGILLOSIS
  10. COTRIM [Concomitant]
     Indication: PROPHYLAXIS
  11. VORICONAZOLE [Concomitant]
     Indication: ASPERGILLOSIS
  12. CASPOFUNGIN [Concomitant]
     Indication: ASPERGILLOSIS
  13. RITUXIMAB [Concomitant]
     Indication: VIRAL DNA TEST POSITIVE

REACTIONS (3)
  - ASPERGILLOSIS [None]
  - EPSTEIN-BARR VIRUS INFECTION [None]
  - LYMPHOPROLIFERATIVE DISORDER [None]
